FAERS Safety Report 11037433 (Version 1)
Quarter: 2015Q2

REPORT INFORMATION
  Report Type: Spontaneous
  Country: US (occurrence: None)
  Receive Date: 20150415
  Receipt Date: 20150415
  Transmission Date: 20150821
  Serious: Yes (Life-Threatening, Hospitalization)
  Sender: FDA-Public Use
  Company Number: None

PATIENT
  Age: 31 Year
  Sex: Female
  Weight: 87.09 kg

DRUGS (8)
  1. ALBUTAROL [Concomitant]
  2. OMPERAZOLE [Concomitant]
     Active Substance: OMEPRAZOLE
  3. CALTRATE [Concomitant]
     Active Substance: CALCIUM CARBONATE
  4. METHADONE [Concomitant]
     Active Substance: METHADONE HYDROCHLORIDE
  5. NITRO [Concomitant]
     Active Substance: NITROGLYCERIN
  6. MULTI VITAMINS [Concomitant]
  7. METHADONE [Suspect]
     Active Substance: METHADONE HYDROCHLORIDE
     Indication: PAIN
     Route: 048
     Dates: start: 20101012, end: 20150413
  8. VITAMIN B12 [Concomitant]
     Active Substance: CYANOCOBALAMIN

REACTIONS (3)
  - Feeling abnormal [None]
  - Loss of consciousness [None]
  - Ventricular extrasystoles [None]

NARRATIVE: CASE EVENT DATE: 20150413
